FAERS Safety Report 6607275-9 (Version None)
Quarter: 2010Q1

REPORT INFORMATION
  Report Type: 
  Country: None (occurrence: None)
  Receive Date: 20100228
  Receipt Date: 20100215
  Transmission Date: 20100710
  Serious: Yes (Death)
  Sender: FDA-Public Use
  Company Number: US-JNJFOC-20100208635

PATIENT

DRUGS (5)
  1. FENTANYL [Suspect]
     Indication: DRUG TOXICITY
  2. OXYCODONE HCL [Suspect]
     Indication: DRUG TOXICITY
  3. ALPRAZOLAM [Suspect]
     Indication: DRUG TOXICITY
  4. HYDROXYZINE [Suspect]
     Indication: DRUG TOXICITY
  5. DIPHENHYDRAMINE HCL [Suspect]
     Indication: DRUG TOXICITY

REACTIONS (2)
  - ANALGESIC DRUG LEVEL INCREASED [None]
  - DEATH [None]
